FAERS Safety Report 5526306-0 (Version None)
Quarter: 2007Q4

REPORT INFORMATION
  Report Type: 
  Country: None (occurrence: None)
  Receive Date: 20071121
  Receipt Date: 20071121
  Transmission Date: 20080405
  Serious: Yes (Life-Threatening, Hospitalization, Disabling)
  Sender: FDA-Public Use
  Company Number: None

PATIENT
  Sex: Female
  Weight: 49.8957 kg

DRUGS (1)
  1. CHANTIX [Suspect]

REACTIONS (5)
  - ABNORMAL BEHAVIOUR [None]
  - INSOMNIA [None]
  - MANIA [None]
  - PHYSICAL ASSAULT [None]
  - SCREAMING [None]
